FAERS Safety Report 5574931-3 (Version None)
Quarter: 2007Q4

REPORT INFORMATION
  Report Type: 
  Country: None (occurrence: None)
  Receive Date: 20071227
  Receipt Date: 20071221
  Transmission Date: 20080405
  Serious: Yes (Hospitalization)
  Sender: FDA-Public Use
  Company Number: A0698695A

PATIENT
  Age: 61 Year
  Sex: Male

DRUGS (17)
  1. TOPOTECAN [Suspect]
     Dosage: 7.5MG WEEKLY
     Route: 042
     Dates: start: 20071121
  2. HYDROCORTISONE [Concomitant]
     Indication: BLOOD PRESSURE
     Dosage: 20MG PER DAY
     Route: 048
  3. FLUDROCORTISONE ACETATE [Concomitant]
     Indication: DRUG USE FOR UNKNOWN INDICATION
     Dosage: .1MG TWICE PER DAY
  4. METOCLOPRAMIDE [Concomitant]
     Indication: NAUSEA
     Route: 048
  5. HYDROMORPHONE HCL [Concomitant]
     Indication: PAIN
     Dosage: 4MG SIX TIMES PER DAY
     Route: 048
  6. ARANESP [Concomitant]
     Dosage: 30MG AS REQUIRED
     Route: 058
  7. MAGNESIUM OXIDE [Concomitant]
     Route: 048
  8. FENTANYL [Concomitant]
     Indication: PAIN
     Dosage: 25MG TWICE PER DAY
     Route: 062
  9. ZOCOR [Concomitant]
     Dosage: 20MG PER DAY
     Route: 048
     Dates: start: 20071107
  10. LORAZEPAM [Concomitant]
     Indication: ANXIETY
     Dosage: 2MG FOUR TIMES PER DAY
     Route: 048
  11. HYDROCODONE BITARTRATE [Concomitant]
     Indication: PAIN
     Dosage: 10MG EIGHT TIMES PER DAY
     Route: 048
  12. POTASSIUM CHLORIDE [Concomitant]
     Dosage: 20MEQ FOUR TIMES PER DAY
     Route: 048
  13. AMITIZA [Concomitant]
     Indication: CONSTIPATION
     Dosage: 24MG AS REQUIRED
     Route: 048
  14. PREVACID [Concomitant]
     Dosage: 30MG PER DAY
     Route: 048
  15. ERYTHROMYCIN [Concomitant]
     Indication: INFECTION
  16. EMLA [Concomitant]
     Dates: start: 20060412
  17. MAG CITRATE [Concomitant]
     Indication: CONSTIPATION
     Route: 048

REACTIONS (16)
  - ANAEMIA [None]
  - BLOOD POTASSIUM DECREASED [None]
  - BLOOD SODIUM DECREASED [None]
  - CARDIAC FAILURE CONGESTIVE [None]
  - DYSPNOEA [None]
  - FATIGUE [None]
  - FLUID OVERLOAD [None]
  - HAEMATEMESIS [None]
  - LEFT VENTRICULAR HYPERTROPHY [None]
  - NEPHROPATHY [None]
  - NEUTROPENIA [None]
  - OESOPHAGEAL CANCER METASTATIC [None]
  - PANCYTOPENIA [None]
  - PYREXIA [None]
  - SINUS TACHYCARDIA [None]
  - THROMBOCYTOPENIA [None]
